FAERS Safety Report 7935972-1 (Version None)
Quarter: 2011Q4

REPORT INFORMATION
  Report Type: 
  Country: None (occurrence: None)
  Receive Date: 20111123
  Receipt Date: 20111116
  Transmission Date: 20120403
  Serious: Yes (Other)
  Sender: FDA-Public Use
  Company Number: JP-ASTELLAS-2011JP001992

PATIENT
  Age: 34 Year
  Sex: Female
  Weight: 45 kg

DRUGS (22)
  1. FAMOTIDINE [Concomitant]
     Dosage: 20 MG, UNKNOWN/D
     Route: 048
  2. FLOMOX [Concomitant]
     Indication: NASOPHARYNGITIS
     Dosage: 200 MG, UNKNOWN/D
     Route: 065
  3. CHLOMY [Concomitant]
     Indication: VAGINITIS BACTERIAL
     Dosage: 100 MG, UNKNOWN/D
     Route: 067
  4. TACROLIMUS [Suspect]
     Dosage: 2 MG, UNKNOWN/D
     Route: 048
     Dates: start: 20081126
  5. ASPIRIN [Concomitant]
     Dosage: 100 MG, UNKNOWN/D
     Route: 048
  6. ALENDRONATE SODIUM [Concomitant]
     Dosage: 5 MG, UNKNOWN/D
     Route: 048
  7. COSPANON [Concomitant]
     Indication: CALCULUS URINARY
     Route: 065
  8. COSPANON [Concomitant]
     Indication: HYDRONEPHROSIS
  9. THIATON [Concomitant]
     Indication: CALCULUS URINARY
     Route: 065
  10. UROCALUN [Concomitant]
     Indication: HYDRONEPHROSIS
  11. TACROLIMUS [Suspect]
     Indication: LUPUS NEPHRITIS
     Dosage: 3 MG, UNKNOWN/D
     Route: 048
     Dates: start: 20080116, end: 20081125
  12. UROCALUN [Concomitant]
     Indication: CALCULUS URINARY
     Route: 065
  13. METHYLPREDNISOLONE [Concomitant]
     Dosage: 20 MG, QOD
     Route: 048
     Dates: start: 20080723
  14. ALFAROL [Concomitant]
     Dosage: 0.25 UG, UNKNOWN/D
     Route: 048
  15. MEILAX [Concomitant]
     Dosage: 1 MG, UNKNOWN/D
     Route: 048
  16. METHYLPREDNISOLONE [Concomitant]
     Indication: LUPUS NEPHRITIS
     Dosage: 24 MG, QOD
     Route: 048
     Dates: end: 20080722
  17. ULGUT [Concomitant]
     Dosage: 400 MG, UNKNOWN/D
     Route: 048
  18. ZOLPIDEM [Concomitant]
     Dosage: 5 MG, UNKNOWN/D
     Route: 048
  19. MEIACT [Concomitant]
     Indication: CALCULUS URINARY
     Route: 065
  20. LEVOTHYROXINE SODIUM [Concomitant]
     Dosage: 50 UG, UNKNOWN/D
     Route: 048
  21. MEIACT [Concomitant]
     Indication: HYDRONEPHROSIS
  22. THIATON [Concomitant]
     Indication: HYDRONEPHROSIS

REACTIONS (8)
  - HYDRONEPHROSIS [None]
  - URACHAL ABSCESS [None]
  - CALCULUS URINARY [None]
  - NASOPHARYNGITIS [None]
  - VAGINITIS BACTERIAL [None]
  - UPPER RESPIRATORY TRACT INFLAMMATION [None]
  - GASTROENTERITIS [None]
  - PHARYNGITIS [None]
